FAERS Safety Report 7545881-8 (Version None)
Quarter: 2011Q2

REPORT INFORMATION
  Report Type: 
  Country: None (occurrence: None)
  Receive Date: 20110614
  Receipt Date: 20110526
  Transmission Date: 20111010
  Serious: Yes (Life-Threatening, Other)
  Sender: FDA-Public Use
  Company Number: FR-ASTELLAS-2011EU003198

PATIENT
  Age: 60 Year
  Sex: Male

DRUGS (4)
  1. PROGRAF [Suspect]
     Dosage: UNK
     Route: 065
     Dates: start: 20060101
  2. CORTICOSTEROIDS [Concomitant]
     Dosage: UNK
     Route: 065
  3. PROGRAF [Suspect]
     Indication: RENAL TRANSPLANT
     Dosage: 1.5 MG, UID/QD
     Route: 048
  4. SIROLIMUS [Concomitant]
     Dosage: UNK
     Route: 065

REACTIONS (17)
  - RENAL FAILURE [None]
  - EPSTEIN-BARR VIRUS INFECTION [None]
  - HISTIOCYTOSIS HAEMATOPHAGIC [None]
  - CYTOMEGALOVIRUS GASTRITIS [None]
  - SEPTIC SHOCK [None]
  - COLON CANCER [None]
  - GASTROINTESTINAL HAEMORRHAGE [None]
  - SMALL INTESTINAL OBSTRUCTION [None]
  - IMPAIRED GASTRIC EMPTYING [None]
  - HERPES VIRUS INFECTION [None]
  - HEART TRANSPLANT REJECTION [None]
  - NAUSEA [None]
  - METASTASES TO PERITONEUM [None]
  - LUNG DISORDER [None]
  - THROMBOCYTOPENIA [None]
  - KIDNEY TRANSPLANT REJECTION [None]
  - STAPHYLOCOCCAL INFECTION [None]
